FAERS Safety Report 18112507 (Version 1)
Quarter: 2020Q3

REPORT INFORMATION
  Report Type: Spontaneous
  Country: US (occurrence: US)
  Receive Date: 20200805
  Receipt Date: 20200805
  Transmission Date: 20201103
  Serious: Yes (Hospitalization, Other)
  Sender: FDA-Public Use
  Company Number: US-AUROBINDO-AUR-APL-2020-037390

PATIENT
  Age: 63 Year
  Sex: Female

DRUGS (6)
  1. MIDAZOLAM. [Concomitant]
     Active Substance: MIDAZOLAM
     Indication: ANXIETY
     Dosage: 2 MILLIGRAM
     Route: 065
  2. CHLORPROMAZINE HYDROCHLOROTHIAZIDE INJECTION [Suspect]
     Active Substance: CHLORPROMAZINE HYDROCHLORIDE
     Indication: EYE PAIN
     Dosage: UNK (1ML OF 25 MG/ML)
     Route: 065
  3. BUPIVACAINE HYDROCHLORIDE INJECTION USP 0.75% (7.5 MG/ML) [Suspect]
     Active Substance: BUPIVACAINE HYDROCHLORIDE
     Indication: LOCAL ANAESTHESIA
     Dosage: UNK (ALONG WITH HYALURONIDASE)
     Route: 065
  4. LIDOCAINE HYDROCHLORIDE INJECTION USP 2%(20MG/ML) [Suspect]
     Active Substance: LIDOCAINE HYDROCHLORIDE
     Indication: LOCAL ANAESTHESIA
     Dosage: 6 MILLILITER (OF 50:50 MIXTURE)
     Route: 065
  5. KETAMINE [Concomitant]
     Active Substance: KETAMINE
     Indication: PRODUCT USED FOR UNKNOWN INDICATION
     Dosage: 10 MILLIGRAM
     Route: 065
  6. FENTANYL. [Concomitant]
     Active Substance: FENTANYL
     Indication: PRODUCT USED FOR UNKNOWN INDICATION
     Dosage: 25 MICROGRAM
     Route: 065

REACTIONS (7)
  - Blood pressure decreased [Unknown]
  - Somnolence [Unknown]
  - Blood glucose increased [Unknown]
  - Depressed level of consciousness [Unknown]
  - Sedation [Unknown]
  - Hypotension [Unknown]
  - Toxicity to various agents [Unknown]
